FAERS Safety Report 8200169-7 (Version None)
Quarter: 2012Q1

REPORT INFORMATION
  Report Type: 
  Country: None (occurrence: None)
  Receive Date: 20120306
  Receipt Date: 20120222
  Transmission Date: 20120608
  Serious: Yes (Hospitalization, Other)
  Sender: FDA-Public Use
  Company Number: IMP_05760_2012

PATIENT
  Age: 72 Year
  Sex: Female

DRUGS (1)
  1. METFORMIN HCL [Suspect]
     Indication: TYPE 2 DIABETES MELLITUS
     Dosage: (850 MG TID)

REACTIONS (14)
  - LACTIC ACIDOSIS [None]
  - MENTAL STATUS CHANGES [None]
  - HYPERLACTACIDAEMIA [None]
  - HYPERTENSION [None]
  - FATIGUE [None]
  - DEHYDRATION [None]
  - ACUTE RESPIRATORY DISTRESS SYNDROME [None]
  - METABOLIC ACIDOSIS [None]
  - CIRCULATORY COLLAPSE [None]
  - RENAL IMPAIRMENT [None]
  - BLOOD GLUCOSE INCREASED [None]
  - BLOOD CREATININE INCREASED [None]
  - GLOMERULAR FILTRATION RATE DECREASED [None]
  - ANURIA [None]
